FAERS Safety Report 5052164-7 (Version None)
Quarter: 2006Q3

REPORT INFORMATION
  Report Type: 
  Country: None (occurrence: None)
  Receive Date: 20060713
  Receipt Date: 20060713
  Transmission Date: 20061208
  Serious: Yes (Death)
  Sender: FDA-Public Use
  Company Number: None

PATIENT
  Age: 79 Year
  Sex: Male
  Weight: 80.7403 kg

DRUGS (2)
  1. GEMCITABINE [Suspect]
     Indication: NON-SMALL CELL LUNG CANCER
     Dosage: 1500 MG/M2 Q2 WEEKS IV
     Route: 042
     Dates: start: 20060428, end: 20060526
  2. PEMETREXED [Suspect]
     Indication: NON-SMALL CELL LUNG CANCER
     Dosage: 500 MG/M2 Q2 WEEKS IV
     Route: 042
     Dates: start: 20060428, end: 20060526

REACTIONS (5)
  - COUGH [None]
  - DYSPNOEA [None]
  - FATIGUE [None]
  - HYPOXIA [None]
  - PYREXIA [None]
